FAERS Safety Report 9215167 (Version 4)
Quarter: 2013Q3

REPORT INFORMATION
  Report Type: Report from Study
  Country: US (occurrence: US)
  Receive Date: 20130405
  Receipt Date: 20130702
  Transmission Date: 20140515
  Serious: Yes (Hospitalization, Other)
  Sender: FDA-Public Use
  Company Number: US-ABBOTT-13P-163-1069946-00

PATIENT
  Age: 50 Year
  Sex: Female
  Weight: 145.73 kg

DRUGS (24)
  1. HUMIRA [Suspect]
     Indication: PYODERMA GANGRENOSUM
     Route: 058
     Dates: start: 20121031
  2. HUMIRA [Suspect]
     Dates: start: 201302
  3. DEPAKOTE ER [Suspect]
     Indication: BIPOLAR I DISORDER
     Dates: start: 1996, end: 201207
  4. DEPAKOTE ER [Suspect]
     Indication: CONVULSION
     Dates: start: 201207, end: 201210
  5. PREDNISONE [Suspect]
     Indication: PYODERMA GANGRENOSUM
     Dosage: HIGH DOSE
     Dates: start: 20120502
  6. ULTRAM [Suspect]
     Indication: PRODUCT USED FOR UNKNOWN INDICATION
  7. PRILOSEC [Suspect]
     Indication: PRODUCT USED FOR UNKNOWN INDICATION
  8. COMBIVENT [Concomitant]
     Indication: ASTHMA
     Route: 055
  9. COMBIVENT [Concomitant]
     Route: 055
  10. ALBUTEROL [Concomitant]
     Route: 055
  11. HUMULIN N [Concomitant]
     Indication: TYPE 2 DIABETES MELLITUS
  12. HUMULIN R [Concomitant]
     Indication: TYPE 2 DIABETES MELLITUS
  13. GLIPIZIDE [Concomitant]
     Indication: PRODUCT USED FOR UNKNOWN INDICATION
  14. QUINAPRIL [Concomitant]
     Indication: PRODUCT USED FOR UNKNOWN INDICATION
  15. REMERON [Concomitant]
     Indication: PRODUCT USED FOR UNKNOWN INDICATION
  16. ZYRTEC [Concomitant]
     Indication: PRODUCT USED FOR UNKNOWN INDICATION
  17. LOTRIMIN [Concomitant]
     Indication: PRODUCT USED FOR UNKNOWN INDICATION
  18. BENADRYL [Concomitant]
     Indication: PRODUCT USED FOR UNKNOWN INDICATION
  19. HYDRODIURIL [Concomitant]
     Indication: PRODUCT USED FOR UNKNOWN INDICATION
  20. HUMALOG [Concomitant]
     Indication: PRODUCT USED FOR UNKNOWN INDICATION
     Dosage: 100 UNIT/ML
     Route: 050
  21. NOVOLIN NPH [Concomitant]
     Indication: PRODUCT USED FOR UNKNOWN INDICATION
     Dosage: 100 UNIT/ML
  22. CENTRUM [Concomitant]
     Indication: PRODUCT USED FOR UNKNOWN INDICATION
     Route: 048
  23. DELTASONE [Concomitant]
  24. ACCUPRIL [Concomitant]
     Indication: PRODUCT USED FOR UNKNOWN INDICATION

REACTIONS (11)
  - Grand mal convulsion [Recovered/Resolved]
  - Convulsion [Not Recovered/Not Resolved]
  - Loss of consciousness [Recovered/Resolved]
  - Haematemesis [Recovering/Resolving]
  - Gastric ulcer haemorrhage [Recovering/Resolving]
  - Convulsion [Unknown]
  - Wound secretion [Recovering/Resolving]
  - Unevaluable event [Not Recovered/Not Resolved]
  - Hepatic enzyme increased [Unknown]
  - Haemorrhage [Recovering/Resolving]
  - Peptic ulcer [Unknown]
